FAERS Safety Report 4901974-2 (Version None)
Quarter: 2006Q1

REPORT INFORMATION
  Report Type: 
  Country: None (occurrence: None)
  Receive Date: 20060206
  Receipt Date: 20041027
  Transmission Date: 20060701
  Serious: Yes (Hospitalization, Disabling)
  Sender: FDA-Public Use
  Company Number: US-ROCHE-384554

PATIENT
  Age: 20 Year
  Sex: Female
  Weight: 65.8 kg

DRUGS (3)
  1. ACCUTANE [Suspect]
     Dosage: DOSAGE REGIMEN: EVERY DAY
     Route: 048
     Dates: start: 19991206, end: 20000515
  2. MINOCYCLINE HCL [Concomitant]
     Route: 048
     Dates: start: 19991206
  3. ORTHO CYCLEN-28 [Concomitant]
     Dosage: DRUG NAME REPORTED AS ORTHO TRI-CYCLEN
     Route: 048

REACTIONS (96)
  - ABDOMINAL DISTENSION [None]
  - ABDOMINAL PAIN LOWER [None]
  - ANAEMIA [None]
  - ANOREXIA [None]
  - ANXIETY [None]
  - AORTIC VALVE SCLEROSIS [None]
  - BACK DISORDER [None]
  - BACK INJURY [None]
  - BENIGN HYDATIDIFORM MOLE [None]
  - BLOOD URINE PRESENT [None]
  - BREAST ABSCESS [None]
  - BRONCHITIS [None]
  - CALCINOSIS [None]
  - CARDIAC FLUTTER [None]
  - CATHETER RELATED COMPLICATION [None]
  - CHEST PAIN [None]
  - CHILLS [None]
  - CHROMOSOMAL MUTATION [None]
  - COAGULOPATHY [None]
  - COLITIS [None]
  - COLITIS ULCERATIVE [None]
  - CONSTIPATION [None]
  - CONTUSION [None]
  - CROHN'S DISEASE [None]
  - CRYING [None]
  - DEHYDRATION [None]
  - DEPRESSION [None]
  - DERMAL CYST [None]
  - DERMATITIS [None]
  - DIARRHOEA [None]
  - DIZZINESS POSTURAL [None]
  - DRUG INEFFECTIVE [None]
  - DRY SKIN [None]
  - DYSURIA [None]
  - ECZEMA [None]
  - ESCHERICHIA INFECTION [None]
  - EYE PAIN [None]
  - FALL [None]
  - FAMILY STRESS [None]
  - FATIGUE [None]
  - FIBROSIS [None]
  - GASTRITIS VIRAL [None]
  - GASTROENTERITIS VIRAL [None]
  - GASTROINTESTINAL DISORDER [None]
  - GOITRE [None]
  - HAEMATOCHEZIA [None]
  - HEADACHE [None]
  - HYPOKALAEMIA [None]
  - IMPAIRED HEALING [None]
  - INFLAMMATION [None]
  - INFLAMMATORY BOWEL DISEASE [None]
  - INGROWING NAIL [None]
  - INSOMNIA [None]
  - INTERNAL INJURY [None]
  - INTESTINAL HAEMORRHAGE [None]
  - IRRITABLE BOWEL SYNDROME [None]
  - JOINT SPRAIN [None]
  - LYMPHOID TISSUE HYPERPLASIA [None]
  - MIGRAINE [None]
  - MITRAL VALVE INCOMPETENCE [None]
  - MITRAL VALVE PROLAPSE [None]
  - MUCOUS STOOLS [None]
  - MUSCLE STRAIN [None]
  - MUSCULOSKELETAL PAIN [None]
  - MUSCULOSKELETAL STIFFNESS [None]
  - NAIL INFECTION [None]
  - NAUSEA [None]
  - NITRITE URINE PRESENT [None]
  - OLIGURIA [None]
  - OVARIAN CYST [None]
  - PAIN [None]
  - PAIN IN EXTREMITY [None]
  - PALPITATIONS [None]
  - PHARYNGITIS [None]
  - PHARYNGOLARYNGEAL PAIN [None]
  - PHOTOPHOBIA [None]
  - PLANTAR FASCIITIS [None]
  - PRODUCTIVE COUGH [None]
  - PROTEIN URINE PRESENT [None]
  - PULMONARY CONGESTION [None]
  - PYREXIA [None]
  - RECTAL HAEMORRHAGE [None]
  - REFUSAL OF TREATMENT BY PATIENT [None]
  - SENSATION OF PRESSURE [None]
  - SINUSITIS [None]
  - SKIN LESION EXCISION [None]
  - TACHYCARDIA [None]
  - TENDERNESS [None]
  - THROMBOSIS [None]
  - URINARY TRACT INFECTION [None]
  - VAGINAL HAEMORRHAGE [None]
  - VOMITING [None]
  - VOMITING IN PREGNANCY [None]
  - WEIGHT INCREASED [None]
  - WHITE BLOOD CELL COUNT INCREASED [None]
  - WOUND INFECTION [None]
